FAERS Safety Report 7789535-1 (Version None)
Quarter: 2011Q3

REPORT INFORMATION
  Report Type: 
  Country: None (occurrence: None)
  Receive Date: 20110930
  Receipt Date: 20110718
  Transmission Date: 20111222
  Serious: No
  Sender: FDA-Public Use
  Company Number: US-ASTRAZENECA-2011SE39731

PATIENT
  Age: 60 Year
  Sex: Female

DRUGS (3)
  1. ARIMIDEX [Suspect]
     Route: 048
     Dates: start: 20090801
  2. BLOOD PRESSURE MEDICATION [Concomitant]
  3. DEPRESSION MEDICATION [Concomitant]

REACTIONS (4)
  - DRUG DOSE OMISSION [None]
  - FEELING ABNORMAL [None]
  - MALAISE [None]
  - TREMOR [None]
